FAERS Safety Report 13669126 (Version 1)
Quarter: 2017Q2

REPORT INFORMATION
  Report Type: Spontaneous
  Country: DK (occurrence: DK)
  Receive Date: 20170620
  Receipt Date: 20170620
  Transmission Date: 20170830
  Serious: Yes (Other)
  Sender: FDA-Public Use
  Company Number: DK-PFIZER INC-2017263512

PATIENT
  Age: 22 Year
  Sex: Female

DRUGS (3)
  1. LYRICA [Suspect]
     Active Substance: PREGABALIN
     Indication: PANIC ATTACK
  2. LYRICA [Suspect]
     Active Substance: PREGABALIN
     Indication: STRESS
  3. LYRICA [Suspect]
     Active Substance: PREGABALIN
     Indication: ANXIETY
     Dosage: UNK
     Dates: start: 201305

REACTIONS (3)
  - Subcutaneous abscess [Unknown]
  - Eye abscess [Unknown]
  - Vaginal abscess [Unknown]

NARRATIVE: CASE EVENT DATE: 20131229
